FAERS Safety Report 8052645-8 (Version None)
Quarter: 2011Q4

REPORT INFORMATION
  Report Type: 
  Country: None (occurrence: None)
  Receive Date: 20111228
  Receipt Date: 20111221
  Transmission Date: 20120403
  Serious: Yes (Death)
  Sender: FDA-Public Use
  Company Number: 2011030626

PATIENT
  Sex: Female

DRUGS (2)
  1. PLASMA [Concomitant]
  2. HAEMOCOMPLETTAN P (FIBRINOGEN CONCENTRATE (HUMAN)) [Suspect]
     Indication: FEMALE GENITAL OPERATION
     Dosage: 7 G QD

REACTIONS (1)
  - ACUTE MYOCARDIAL INFARCTION [None]
